FAERS Safety Report 14630024 (Version 10)
Quarter: 2020Q2

REPORT INFORMATION
  Report Type: Spontaneous
  Country: US (occurrence: US)
  Receive Date: 20180313
  Receipt Date: 20200410
  Transmission Date: 20200713
  Serious: No
  Sender: FDA-Public Use
  Company Number: US-PFIZER INC-2018074937

PATIENT
  Age: 56 Year
  Sex: Female
  Weight: 70 kg

DRUGS (6)
  1. SUTENT [Suspect]
     Active Substance: SUNITINIB MALATE
     Dosage: 37.5 MG, DAILY (1 WEEK ON 2 WEEKS OFF)
     Route: 048
     Dates: start: 2018
  2. LEVOTHYROXINE. [Concomitant]
     Active Substance: LEVOTHYROXINE
     Indication: THYROID DISORDER
     Dosage: 0.5 MG, UNK
  3. SUTENT [Suspect]
     Active Substance: SUNITINIB MALATE
     Indication: THYMIC CANCER METASTATIC
     Dosage: 37.5 MG, CYCLIC (28 DAYS ON/14 DAYS OFF)
     Dates: start: 20180223, end: 20180322
  4. LEVOTHYROXINE. [Concomitant]
     Active Substance: LEVOTHYROXINE
     Dosage: UNK (0.75MCG TO 0.88MCG BY MOUTH)
     Route: 048
  5. LEVOTHYROXINE. [Concomitant]
     Active Substance: LEVOTHYROXINE
     Dosage: 0.75 MG, UNK
  6. SUTENT [Suspect]
     Active Substance: SUNITINIB MALATE
     Dosage: 37.5 MG, CYCLIC (DAILY FOR 28 DAYS ON/14 DAYS OFF);(ONE WEEK ON/ONE WEEK OFF)
     Dates: start: 20180420

REACTIONS (23)
  - Eye disorder [Unknown]
  - Insomnia [Not Recovered/Not Resolved]
  - Swelling [Unknown]
  - White blood cell count decreased [Recovering/Resolving]
  - Neutrophil count decreased [Unknown]
  - Musculoskeletal chest pain [Unknown]
  - Palmar-plantar erythrodysaesthesia syndrome [Not Recovered/Not Resolved]
  - Dyspepsia [Recovered/Resolved]
  - Alopecia [Not Recovered/Not Resolved]
  - Off label use [Unknown]
  - Thyroid disorder [Unknown]
  - Abdominal discomfort [Unknown]
  - Fibromyalgia [Unknown]
  - Chest discomfort [Unknown]
  - Condition aggravated [Recovered/Resolved]
  - Nail disorder [Unknown]
  - Erythema [Unknown]
  - Diarrhoea [Unknown]
  - Migraine [Unknown]
  - Pain in extremity [Unknown]
  - Neck pain [Unknown]
  - Product use in unapproved indication [Unknown]
  - Dry eye [Unknown]

NARRATIVE: CASE EVENT DATE: 2018
